FAERS Safety Report 13830368 (Version 2)
Quarter: 2017Q4

REPORT INFORMATION
  Report Type: Spontaneous
  Country: US (occurrence: US)
  Receive Date: 20170803
  Receipt Date: 20171102
  Transmission Date: 20180320
  Serious: No
  Sender: FDA-Public Use
  Company Number: US-SA-2017SA080241

PATIENT
  Sex: Female
  Weight: 53.07 kg

DRUGS (3)
  1. PRALUENT [Suspect]
     Active Substance: ALIROCUMAB
     Indication: TYPE IIA HYPERLIPIDAEMIA
     Route: 058
     Dates: start: 20161001, end: 201702
  2. LEVOXYL [Concomitant]
     Active Substance: LEVOTHYROXINE SODIUM
     Indication: THYROID DISORDER
     Route: 065
  3. ALIROCUMAB PREFILLED PEN [Suspect]
     Active Substance: ALIROCUMAB
     Indication: TYPE IIA HYPERLIPIDAEMIA
     Dates: start: 20161001, end: 201702

REACTIONS (3)
  - Feeling abnormal [Recovered/Resolved]
  - Influenza like illness [Recovered/Resolved]
  - Sinus congestion [Recovered/Resolved]

NARRATIVE: CASE EVENT DATE: 201610
